FAERS Safety Report 5411797-6 (Version None)
Quarter: 2007Q3

REPORT INFORMATION
  Report Type: 
  Country: None (occurrence: None)
  Receive Date: 20070813
  Receipt Date: 20070807
  Transmission Date: 20080115
  Serious: Yes (Hospitalization, Other)
  Sender: FDA-Public Use
  Company Number: PHBS2007JP12983

PATIENT
  Age: 79 Year
  Sex: Male

DRUGS (3)
  1. LIORESAL [Suspect]
     Indication: HEADACHE
     Route: 048
  2. FLIVAS [Concomitant]
     Route: 048
  3. NERSET [Concomitant]
     Route: 048

REACTIONS (7)
  - BLOOD URINE PRESENT [None]
  - DERMATITIS BULLOUS [None]
  - ECZEMA [None]
  - EOSINOPHIL COUNT INCREASED [None]
  - HEPATIC FUNCTION ABNORMAL [None]
  - OEDEMA PERIPHERAL [None]
  - PROTEIN URINE PRESENT [None]
